FAERS Safety Report 15304871 (Version 1)
Quarter: 2018Q3

REPORT INFORMATION
  Report Type: Spontaneous
  Country: US (occurrence: US)
  Receive Date: 20180809
  Receipt Date: 20180809
  Transmission Date: 20181010
  Serious: Yes (Hospitalization)
  Sender: FDA-Public Use
  Company Number: None

PATIENT
  Age: 68 Year
  Sex: Male
  Weight: 113 kg

DRUGS (2)
  1. HYDRALAZINE [Suspect]
     Active Substance: HYDRALAZINE HYDROCHLORIDE
     Indication: GLOMERULONEPHRITIS
     Route: 048
     Dates: start: 20180202, end: 20180218
  2. HYDRALAZINE [Suspect]
     Active Substance: HYDRALAZINE HYDROCHLORIDE
     Indication: HYPERTENSION
     Route: 048
     Dates: start: 20180202, end: 20180218

REACTIONS (7)
  - Vomiting [None]
  - Weight increased [None]
  - Nausea [None]
  - Thrombotic thrombocytopenic purpura [None]
  - Oedema [None]
  - Dyspnoea [None]
  - Pancytopenia [None]

NARRATIVE: CASE EVENT DATE: 20180219
